FAERS Safety Report 4523054-0 (Version None)
Quarter: 2004Q4

REPORT INFORMATION
  Report Type: 
  Country: None (occurrence: None)
  Receive Date: 20041208
  Receipt Date: 20041125
  Transmission Date: 20050328
  Serious: Yes (Other)
  Sender: FDA-Public Use
  Company Number: 2004229597JP

PATIENT
  Age: 72 Year
  Sex: Male

DRUGS (8)
  1. CABERGOLINE [Suspect]
     Indication: PARKINSON'S DISEASE
     Dosage: SEE IMAGE
     Route: 048
     Dates: start: 20040304, end: 20040324
  2. CABERGOLINE [Suspect]
     Indication: PARKINSON'S DISEASE
     Dosage: SEE IMAGE
     Route: 048
     Dates: start: 20040325, end: 20040331
  3. TEPRENONE (TEPRENONE) [Concomitant]
  4. SINEMET [Concomitant]
  5. AMANTADINE HCL [Concomitant]
  6. SENNA LEAF (SENNA LEAF) [Concomitant]
  7. ALOSENN (ACHILLEA, RUBIA ROOT TINCTURE, SENNA FRUIT, SENNA LEAF, TARAX [Concomitant]
  8. ROXATIDINE ACETATE HYDROCHLORIDE (ROXATIDINE ACETATE HYDRCHLORIDE) [Concomitant]

REACTIONS (3)
  - DELUSION [None]
  - HALLUCINATION [None]
  - MOBILITY DECREASED [None]
